FAERS Safety Report 4296710-X (Version None)
Quarter: 2004Q1

REPORT INFORMATION
  Report Type: 
  Country: None (occurrence: None)
  Receive Date: 20040217
  Receipt Date: 20031016
  Transmission Date: 20041129
  Serious: Yes (Hospitalization, Disabling, Other)
  Sender: FDA-Public Use
  Company Number: WAES 0310USA01956

PATIENT
  Age: 48 Year
  Sex: Male
  Weight: 66 kg

DRUGS (13)
  1. LORTAB [Concomitant]
  2. AMITRIPTYLINE HYDROCHLORIDE [Concomitant]
     Indication: DEPRESSION
     Dates: start: 19990514, end: 20011003
  3. AMITRIPTYLINE HYDROCHLORIDE [Concomitant]
     Indication: ANXIETY
     Dates: start: 19990514, end: 20011003
  4. CELEBREX [Concomitant]
     Indication: PAIN
     Dates: start: 19991210, end: 20001205
  5. CIPRO [Concomitant]
  6. NEURONTIN [Concomitant]
     Indication: PAIN
     Dates: start: 19990716
  7. HYDROCODONE BITARTRATE [Concomitant]
     Indication: PAIN
     Dates: start: 19990502
  8. LORAZEPAM [Concomitant]
     Indication: ANXIETY
     Dates: start: 19990514, end: 19990515
  9. METHOCARBAMOL [Concomitant]
     Indication: PAIN
     Dates: start: 19991210, end: 20020723
  10. VIOXX [Suspect]
     Indication: OSTEOARTHRITIS
     Route: 048
     Dates: start: 19990501, end: 20010101
  11. VIOXX [Suspect]
     Route: 048
     Dates: start: 20010101, end: 20020101
  12. TRAZODONE HYDROCHLORIDE [Concomitant]
     Indication: DEPRESSION
     Dates: start: 19990521, end: 20021201
  13. TRAZODONE HYDROCHLORIDE [Concomitant]
     Indication: ANXIETY
     Dates: start: 19990521, end: 20021201

REACTIONS (28)
  - ACCIDENT AT WORK [None]
  - ACUTE MYOCARDIAL INFARCTION [None]
  - ANXIETY [None]
  - ATHEROSCLEROSIS [None]
  - BACK DISORDER [None]
  - BACK INJURY [None]
  - BACK PAIN [None]
  - CEREBROVASCULAR ACCIDENT [None]
  - CHEST PAIN [None]
  - CORONARY ARTERY DISEASE [None]
  - CORONARY ARTERY STENOSIS [None]
  - DEPRESSION [None]
  - EJECTION FRACTION DECREASED [None]
  - EMOTIONAL DISTRESS [None]
  - HIGH DENSITY LIPOPROTEIN DECREASED [None]
  - HYPERLIPIDAEMIA [None]
  - HYPERTENSION [None]
  - HYPOTENSION [None]
  - IMPAIRED WORK ABILITY [None]
  - INSOMNIA [None]
  - LOSS OF CONSCIOUSNESS [None]
  - MITRAL VALVE INCOMPETENCE [None]
  - MYOCARDIAL INFARCTION [None]
  - NECK INJURY [None]
  - NECK PAIN [None]
  - OSTEOARTHRITIS [None]
  - PAIN [None]
  - PANIC ATTACK [None]
